FAERS Safety Report 23394034 (Version 3)
Quarter: 2024Q1

REPORT INFORMATION
  Report Type: Spontaneous
  Country: US (occurrence: US)
  Receive Date: 20240111
  Receipt Date: 20240117
  Transmission Date: 20240410
  Serious: No
  Sender: FDA-Public Use
  Company Number: US-PFIZER INC-202400004369

PATIENT
  Age: 67 Year
  Sex: Male

DRUGS (1)
  1. PAXLOVID [Suspect]
     Active Substance: NIRMATRELVIR\RITONAVIR
     Indication: COVID-19 treatment
     Dosage: UNK
     Dates: start: 20231219, end: 20231225

REACTIONS (3)
  - Disease recurrence [Unknown]
  - COVID-19 [Unknown]
  - Inappropriate schedule of product administration [Unknown]
